FAERS Safety Report 9971705 (Version 1)
Quarter: 2014Q1

REPORT INFORMATION
  Report Type: Report from Study
  Country: US (occurrence: US)
  Receive Date: 20140306
  Receipt Date: 20140306
  Transmission Date: 20141002
  Serious: No
  Sender: FDA-Public Use
  Company Number: US-ABBVIE-13P-163-1153623-00

PATIENT
  Age: 46 Year
  Sex: Female
  Weight: 43.13 kg

DRUGS (4)
  1. HUMIRA [Suspect]
     Indication: CROHN^S DISEASE
     Route: 058
     Dates: start: 20130711, end: 20130711
  2. HUMIRA [Suspect]
     Route: 058
     Dates: start: 20130725, end: 20130725
  3. PROTONIX [Concomitant]
     Indication: CROHN^S DISEASE
  4. IRON [Concomitant]
     Indication: IRON DEFICIENCY
     Dates: start: 201308

REACTIONS (4)
  - Dysphonia [Not Recovered/Not Resolved]
  - Cough [Not Recovered/Not Resolved]
  - Upper-airway cough syndrome [Not Recovered/Not Resolved]
  - Nasopharyngitis [Not Recovered/Not Resolved]
